FAERS Safety Report 24834897 (Version 3)
Quarter: 2025Q1

REPORT INFORMATION
  Report Type: Spontaneous
  Country: FR (occurrence: FR)
  Receive Date: 20250113
  Receipt Date: 20250316
  Transmission Date: 20250409
  Serious: Yes (Other)
  Sender: SANOFI AVENTIS
  Company Number: FR-AFSSAPS-AM2024001019

PATIENT
  Age: 47 Year
  Sex: Female
  Weight: 71 kg

DRUGS (16)
  1. PREDNISONE [Suspect]
     Active Substance: PREDNISONE
     Indication: Rheumatoid arthritis
     Dosage: 5 MG, QD
     Route: 048
     Dates: start: 20230403, end: 20230517
  2. PREDNISONE [Suspect]
     Active Substance: PREDNISONE
     Dosage: 5 MG, QD
     Route: 048
     Dates: start: 202312
  3. PLAQUENIL [Suspect]
     Active Substance: HYDROXYCHLOROQUINE SULFATE
     Indication: Rheumatoid arthritis
     Dosage: 400 MG, QD
     Route: 048
     Dates: start: 20230404, end: 20230516
  4. LEFLUNOMIDE [Suspect]
     Active Substance: LEFLUNOMIDE
     Indication: Rheumatoid arthritis
     Route: 048
     Dates: start: 20230404, end: 20230514
  5. LEFLUNOMIDE [Suspect]
     Active Substance: LEFLUNOMIDE
     Route: 048
     Dates: start: 202209, end: 202303
  6. IRBESARTAN [Suspect]
     Active Substance: IRBESARTAN
     Indication: Hypertension
     Dosage: 150 MG, QD
     Route: 048
     Dates: start: 202312
  7. IRBESARTAN [Suspect]
     Active Substance: IRBESARTAN
     Dosage: 150 MG, QD
     Route: 048
     Dates: start: 20230403, end: 20230520
  8. OXAZEPAM [Suspect]
     Active Substance: OXAZEPAM
     Indication: Dry mouth
     Dosage: 15 MG, QD
     Route: 048
     Dates: start: 202312
  9. OXAZEPAM [Suspect]
     Active Substance: OXAZEPAM
     Dosage: 15 MG, QD
     Route: 048
     Dates: start: 20230511, end: 20230519
  10. MELATONIN [Suspect]
     Active Substance: MELATONIN
     Indication: Insomnia
     Dosage: 3 MG, QD
     Route: 048
     Dates: start: 20230511, end: 20230518
  11. ACETAMINOPHEN\BELLADONNA LEAF\CAFFEINE\OPIUM [Suspect]
     Active Substance: ACETAMINOPHEN\BELLADONNA LEAF\CAFFEINE\OPIUM
     Indication: Pain
     Dosage: 6 DF, QD
     Route: 048
     Dates: start: 20230404, end: 20230516
  12. PHLOROGLUCINOL [Suspect]
     Active Substance: PHLOROGLUCINOL
     Indication: Abdominal pain
     Route: 048
     Dates: start: 20230404, end: 20230514
  13. ANETHOLTRITHION [Suspect]
     Active Substance: ANETHOLTRITHION
     Indication: Dry mouth
     Route: 048
     Dates: start: 20230404, end: 20230514
  14. ENBREL [Suspect]
     Active Substance: ETANERCEPT
     Indication: Dry mouth
     Dosage: 50 MG, QW
     Route: 048
     Dates: start: 20220915, end: 20230514
  15. MOVICOL [Suspect]
     Active Substance: POLYETHYLENE GLYCOL 3350\POTASSIUM CHLORIDE\SODIUM BICARBONATE\SODIUM CHLORIDE
     Indication: Constipation prophylaxis
     Route: 048
     Dates: start: 20230403, end: 20230519
  16. MOVICOL [Suspect]
     Active Substance: POLYETHYLENE GLYCOL 3350\POTASSIUM CHLORIDE\SODIUM BICARBONATE\SODIUM CHLORIDE
     Route: 048
     Dates: start: 202312

REACTIONS (1)
  - Rash pruritic [Recovered/Resolved]

NARRATIVE: CASE EVENT DATE: 20230514
